FAERS Safety Report 6784960-X (Version None)
Quarter: 2010Q2

REPORT INFORMATION
  Report Type: 
  Country: None (occurrence: None)
  Receive Date: 20100622
  Receipt Date: 20100617
  Transmission Date: 20101027
  Serious: Yes (Death)
  Sender: FDA-Public Use
  Company Number: CHPA2010US10183

PATIENT
  Sex: Male

DRUGS (1)
  1. KERI UNKNOWN (NCH) [Suspect]
     Dosage: UNK, UNK
     Route: 048
     Dates: start: 20100617, end: 20100617

REACTIONS (3)
  - DEATH [None]
  - INCORRECT ROUTE OF DRUG ADMINISTRATION [None]
  - VOMITING [None]
